FAERS Safety Report 10683465 (Version 2)
Quarter: 2015Q1

REPORT INFORMATION
  Report Type: Spontaneous
  Country: IL (occurrence: IL)
  Receive Date: 20141230
  Receipt Date: 20150115
  Transmission Date: 20150720
  Serious: Yes (Hospitalization)
  Sender: FDA-Public Use
  Company Number: IL-MALLINCKRODT-T201404597

PATIENT
  Sex: Female

DRUGS (1)
  1. OFIRMEV [Suspect]
     Active Substance: ACETAMINOPHEN
     Indication: ANALGESIC THERAPY
     Dosage: UNK
     Route: 042

REACTIONS (4)
  - Septic shock [Recovering/Resolving]
  - Haemorrhage [Recovering/Resolving]
  - Toxic shock syndrome [Recovering/Resolving]
  - Disseminated intravascular coagulation [Recovering/Resolving]
